FAERS Safety Report 23483292 (Version 1)
Quarter: 2024Q1

REPORT INFORMATION
  Report Type: Spontaneous
  Country: KR (occurrence: KR)
  Receive Date: 20240205
  Receipt Date: 20240205
  Transmission Date: 20240410
  Serious: Yes (Other)
  Sender: FDA-Public Use
  Company Number: KR-FreseniusKabi-FK202401884

PATIENT
  Age: 48 Year
  Sex: Male
  Weight: 72 kg

DRUGS (5)
  1. PROPOFOL [Suspect]
     Active Substance: PROPOFOL
     Indication: General anaesthesia
  2. ROCURONIUM [Suspect]
     Active Substance: ROCURONIUM BROMIDE
     Indication: General anaesthesia
  3. REMIFENTANIL [Suspect]
     Active Substance: REMIFENTANIL
     Indication: General anaesthesia
  4. SODIUM CHLORIDE [Concomitant]
     Active Substance: SODIUM CHLORIDE
     Indication: Vehicle solution use
  5. SUGAMMADEX [Concomitant]
     Active Substance: SUGAMMADEX
     Indication: Neuromuscular blockade reversal

REACTIONS (4)
  - Cricopharyngeal achalasia [Not Recovered/Not Resolved]
  - Cardiac arrest [Recovered/Resolved]
  - Respiratory failure [Recovered/Resolved]
  - Dysphagia [Not Recovered/Not Resolved]
